FAERS Safety Report 25293731 (Version 1)
Quarter: 2025Q2

REPORT INFORMATION
  Report Type: Spontaneous
  Country: US (occurrence: US)
  Receive Date: 20250510
  Receipt Date: 20250510
  Transmission Date: 20250716
  Serious: No
  Sender: SANOFI AVENTIS
  Company Number: US-SA-2025SA127758

PATIENT
  Sex: Female

DRUGS (12)
  1. DUPIXENT [Suspect]
     Active Substance: DUPILUMAB
     Indication: Asthma
     Dosage: 300 MG, QOW
     Route: 058
  2. ADVAIR HFA [Concomitant]
     Active Substance: FLUTICASONE PROPIONATE\SALMETEROL XINAFOATE
  3. SPIRIVA [Concomitant]
     Active Substance: TIOTROPIUM BROMIDE MONOHYDRATE
  4. AMOXICILLIN [Concomitant]
     Active Substance: AMOXICILLIN
  5. ESTRADIOL [Concomitant]
     Active Substance: ESTRADIOL
  6. FLUOXETINE HYDROCHLORIDE [Concomitant]
     Active Substance: FLUOXETINE HYDROCHLORIDE
  7. FLUTICASONE [Concomitant]
     Active Substance: FLUTICASONE
  8. Levrocin [Concomitant]
  9. IPRATROPIUM [Concomitant]
     Active Substance: IPRATROPIUM
  10. LORAZEPAM [Concomitant]
     Active Substance: LORAZEPAM
  11. MONTELUKAST [Concomitant]
     Active Substance: MONTELUKAST
  12. ZAFIRLUKAST [Concomitant]
     Active Substance: ZAFIRLUKAST

REACTIONS (3)
  - Injection site pain [Unknown]
  - Increased appetite [Unknown]
  - Tooth fracture [Unknown]
